FAERS Safety Report 5643663-5 (Version None)
Quarter: 2008Q1

REPORT INFORMATION
  Report Type: 
  Country: None (occurrence: None)
  Receive Date: 20080228
  Receipt Date: 20080215
  Transmission Date: 20080703
  Serious: Yes (Other)
  Sender: FDA-Public Use
  Company Number: US-PFIZER INC-2008015247

PATIENT
  Sex: Male
  Weight: 46.818 kg

DRUGS (5)
  1. CHANTIX [Suspect]
     Indication: SMOKING CESSATION THERAPY
     Route: 048
  2. ASPIRIN [Concomitant]
  3. ZOCOR [Concomitant]
  4. VITAMINS [Concomitant]
  5. COCAINE [Concomitant]

REACTIONS (1)
  - DRUG ABUSE [None]
